FAERS Safety Report 10973425 (Version 1)
Quarter: 2015Q1

REPORT INFORMATION
  Report Type: Spontaneous
  Country: US (occurrence: None)
  Receive Date: 20150226
  Receipt Date: 20150226
  Transmission Date: 20150721
  Serious: No
  Sender: FDA-Public Use
  Company Number: TPA2009Q00450

PATIENT
  Sex: Male

DRUGS (4)
  1. ULORIC [Suspect]
     Active Substance: FEBUXOSTAT
     Indication: PRODUCT USED FOR UNKNOWN INDICATION
     Route: 048
     Dates: start: 20090409, end: 200904
  2. VICODIN (PARACETAMOL HYDROCODONE BITARTRATE) [Concomitant]
  3. ALEVE (NAPROXEN SODIUM) [Concomitant]
  4. OMEPARAZOLE [Concomitant]

REACTIONS (1)
  - Haematochezia [None]

NARRATIVE: CASE EVENT DATE: 20090410
